FAERS Safety Report 6396786-X (Version None)
Quarter: 2009Q4

REPORT INFORMATION
  Report Type: 
  Country: None (occurrence: None)
  Receive Date: 20091012
  Receipt Date: 20090812
  Transmission Date: 20100525
  Serious: No
  Sender: FDA-Public Use
  Company Number: US-ASTRAZENECA-2009SE07730

PATIENT
  Age: 55 Year
  Sex: Male

DRUGS (1)
  1. SYMBICORT [Suspect]
     Indication: ASTHMA
     Dosage: 160/4.5, TOTAL DAILY DOSE 640 MG
     Route: 055

REACTIONS (2)
  - DYSPHONIA [None]
  - THROAT TIGHTNESS [None]
